FAERS Safety Report 10643180 (Version 1)
Quarter: 2014Q4

REPORT INFORMATION
  Report Type: Spontaneous
  Country: US (occurrence: None)
  Receive Date: 20141121
  Receipt Date: 20141121
  Transmission Date: 20150529
  Serious: No
  Sender: FDA-Public Use
  Company Number: 163-10004-14081956

PATIENT
  Age: 45 Year
  Sex: Female
  Weight: 109.32 kg

DRUGS (8)
  1. ARMOUR THYROID (THYROID) [Concomitant]
  2. ENBREL [Concomitant]
     Active Substance: ETANERCEPT
  3. VERAPAMIL [Concomitant]
     Active Substance: VERAPAMIL HYDROCHLORIDE
  4. SULFASALAZINE. [Concomitant]
     Active Substance: SULFASALAZINE
  5. FLUOXETINE [Concomitant]
     Active Substance: FLUOXETINE\FLUOXETINE HYDROCHLORIDE
  6. NORTRIPTYLIN (NORTRIPTYLINE HYDROCHLORIDE) [Concomitant]
  7. OTEZLA [Suspect]
     Active Substance: APREMILAST
     Indication: PSORIATIC ARTHROPATHY
     Route: 048
     Dates: start: 20140707
  8. LISINOPRIL. [Concomitant]
     Active Substance: LISINOPRIL

REACTIONS (4)
  - Headache [None]
  - Restless legs syndrome [None]
  - Insomnia [None]
  - Nausea [None]

NARRATIVE: CASE EVENT DATE: 20140714
